FAERS Safety Report 8894723 (Version 1)
Quarter: 2012Q4

REPORT INFORMATION
  Report Type: 
  Country: CA (occurrence: CA)
  Receive Date: 20121107
  Receipt Date: 20121107
  Transmission Date: 20130627
  Serious: Yes (Other)
  Sender: FDA-Public Use
  Company Number: PHHY2012CA101886

PATIENT
  Sex: Female

DRUGS (2)
  1. GILENYA [Suspect]
     Indication: RELAPSING-REMITTING MULTIPLE SCLEROSIS
     Dosage: 0.5 mg, daily
     Route: 048
     Dates: start: 20120110, end: 201202
  2. GILENYA [Suspect]
     Dosage: 0.5 mg, Daily
     Route: 048
     Dates: start: 20120314

REACTIONS (3)
  - Retinal oedema [Unknown]
  - Diplopia [Recovered/Resolved]
  - Eye pain [Unknown]
